FAERS Safety Report 4704758-3 (Version None)
Quarter: 2005Q2

REPORT INFORMATION
  Report Type: 
  Country: None (occurrence: None)
  Receive Date: 20050630
  Receipt Date: 20050617
  Transmission Date: 20051028
  Serious: Yes (Hospitalization, Other)
  Sender: FDA-Public Use
  Company Number: KII-2005-0017164

PATIENT
  Age: 47 Year
  Sex: Male

DRUGS (4)
  1. MORPHINE [Suspect]
     Indication: PAIN
     Dosage: ORAL
     Route: 048
  2. AMITRIPTYLINE HCL [Suspect]
     Indication: PAIN
     Dosage: ORAL
     Route: 048
  3. BENZODIAZEPINE DERIVATIVES [Suspect]
  4. ALLOPURINOL [Suspect]

REACTIONS (13)
  - ACIDOSIS [None]
  - AGITATION [None]
  - ANION GAP INCREASED [None]
  - BLOOD PRESSURE INCREASED [None]
  - DEPRESSED LEVEL OF CONSCIOUSNESS [None]
  - ELECTROCARDIOGRAM QRS COMPLEX PROLONGED [None]
  - ELECTROCARDIOGRAM QT CORRECTED INTERVAL PROLONGED [None]
  - LOSS OF CONSCIOUSNESS [None]
  - MIOSIS [None]
  - MYDRIASIS [None]
  - POSTURING [None]
  - RESTLESSNESS [None]
  - SOMNOLENCE [None]
